FAERS Safety Report 10945164 (Version 1)
Quarter: 2015Q1

REPORT INFORMATION
  Report Type: Spontaneous
  Country: US (occurrence: None)
  Receive Date: 20150226
  Receipt Date: 20150226
  Transmission Date: 20150721
  Serious: No
  Sender: FDA-Public Use
  Company Number: TPA2010A02069

PATIENT
  Age: 69 Year
  Sex: Female
  Weight: 58.97 kg

DRUGS (3)
  1. OTHER MEDICINES (ALL OTHER THERAPEUTIC PRODUCTS) [Concomitant]
  2. VICODIN (PARACETAMOL, HYDROCODONE BITARTRATE) [Concomitant]
  3. ULORIC [Suspect]
     Active Substance: FEBUXOSTAT
     Indication: GOUT
     Route: 048
     Dates: start: 20100401, end: 20100408

REACTIONS (3)
  - Bladder spasm [None]
  - Bladder pain [None]
  - Blood creatinine increased [None]

NARRATIVE: CASE EVENT DATE: 201004
